FAERS Safety Report 10041622 (Version 1)
Quarter: 2014Q1

REPORT INFORMATION
  Report Type: Report from Study
  Country: US (occurrence: US)
  Receive Date: 20140327
  Receipt Date: 20140327
  Transmission Date: 20141002
  Serious: Yes (Hospitalization)
  Sender: FDA-Public Use
  Company Number: US-SA-2014SA036119

PATIENT
  Age: 71 Year
  Sex: Female
  Weight: 90.5 kg

DRUGS (5)
  1. ELOXATIN [Suspect]
     Indication: ADENOCARCINOMA OF COLON
     Route: 042
     Dates: start: 20110613
  2. FLUOROURACIL [Suspect]
     Indication: ADENOCARCINOMA OF COLON
     Route: 040
     Dates: start: 20110613
  3. FLUOROURACIL [Suspect]
     Indication: ADENOCARCINOMA OF COLON
     Route: 042
     Dates: start: 20110613
  4. BLINDED THERAPY [Suspect]
     Indication: ADENOCARCINOMA OF COLON
     Route: 065
     Dates: start: 20110613
  5. LEUCOVORIN CALCIUM [Concomitant]
     Dates: start: 20110613

REACTIONS (2)
  - Pulmonary hypertension [Recovered/Resolved]
  - Embolism [Recovered/Resolved]
